FAERS Safety Report 10498858 (Version 1)
Quarter: 2014Q4

REPORT INFORMATION
  Report Type: Spontaneous
  Country: BR (occurrence: BR)
  Receive Date: 20141006
  Receipt Date: 20141006
  Transmission Date: 20150528
  Serious: Yes (Other)
  Sender: FDA-Public Use
  Company Number: BR-PFIZER INC-2014271027

PATIENT
  Age: 31 Year
  Sex: Female
  Weight: 69 kg

DRUGS (1)
  1. DOSTINEX [Suspect]
     Active Substance: CABERGOLINE
     Indication: BLOOD PROLACTIN INCREASED
     Dosage: 1 TABLET OF 0.5 MG, 2X/WEEK
     Route: 048
     Dates: start: 2013

REACTIONS (2)
  - Pituitary tumour [Unknown]
  - Menstrual disorder [Unknown]
